FAERS Safety Report 8983226 (Version 1)
Quarter: 2012Q4

REPORT INFORMATION
  Report Type: 
  Country: US (occurrence: US)
  Receive Date: 20121224
  Receipt Date: 20121224
  Transmission Date: 20130627
  Serious: Yes (Other)
  Sender: FDA-Public Use
  Company Number: PHEH2012US023010

PATIENT
  Age: 51 Year
  Sex: Female
  Weight: 104.3 kg

DRUGS (7)
  1. RECLAST [Suspect]
     Indication: OSTEOPENIA
     Dosage: 5 mg, UNK
     Route: 042
     Dates: start: 20121115
  2. VICODIN [Concomitant]
     Indication: PAIN
     Route: 048
  3. TYLENOL [Concomitant]
     Indication: PAIN
     Dosage: 375 mg, UNK
     Route: 048
  4. DICLOFENAC SODIUM [Concomitant]
     Indication: PAIN
     Dosage: 50 mg, BID
     Route: 048
     Dates: start: 20121126
  5. IBUPROFEN [Concomitant]
     Indication: ARTHRALGIA
     Dosage: 1000 mg, QID
     Route: 048
     Dates: start: 20121125
  6. LEXAPRO [Concomitant]
     Indication: DEPRESSION
     Dosage: 70 mg, UNK
     Route: 048
  7. PRILOSEC [Concomitant]
     Indication: GASTROOESOPHAGEAL REFLUX DISEASE
     Dosage: 40 mg, UNK
     Route: 048

REACTIONS (7)
  - Carpal tunnel syndrome [Not Recovered/Not Resolved]
  - Osteoarthritis [Not Recovered/Not Resolved]
  - Pain in extremity [Not Recovered/Not Resolved]
  - Arthralgia [Not Recovered/Not Resolved]
  - Pain [Unknown]
  - Condition aggravated [Not Recovered/Not Resolved]
  - Osteopenia [Not Recovered/Not Resolved]
